FAERS Safety Report 14838066 (Version 1)
Quarter: 2018Q2

REPORT INFORMATION
  Report Type: Spontaneous
  Country: US (occurrence: US)
  Receive Date: 20180502
  Receipt Date: 20180502
  Transmission Date: 20180711
  Serious: Yes (Other)
  Sender: FDA-Public Use
  Company Number: US-ASTRAZENECA-2018SE57819

PATIENT
  Age: 510 Month
  Sex: Female
  Weight: 52.2 kg

DRUGS (12)
  1. MOVANTIK [Suspect]
     Active Substance: NALOXEGOL OXALATE
     Indication: POSTOPERATIVE CARE
     Route: 048
  2. MOVANTIK [Suspect]
     Active Substance: NALOXEGOL OXALATE
     Indication: DYSMENORRHOEA
     Route: 048
     Dates: start: 20180319
  3. MOVANTIK [Suspect]
     Active Substance: NALOXEGOL OXALATE
     Indication: DYSMENORRHOEA
     Route: 048
     Dates: start: 201607, end: 201608
  4. MOVANTIK [Suspect]
     Active Substance: NALOXEGOL OXALATE
     Indication: POSTOPERATIVE CARE
     Route: 048
     Dates: start: 201607, end: 201608
  5. MESTINON [Concomitant]
     Active Substance: PYRIDOSTIGMINE BROMIDE
     Indication: MINERAL SUPPLEMENTATION
     Dosage: AS REQUIRED
  6. VALIUM [Concomitant]
     Active Substance: DIAZEPAM
     Indication: MINERAL SUPPLEMENTATION
     Dosage: AS REQUIRED
  7. MOVANTIK [Suspect]
     Active Substance: NALOXEGOL OXALATE
     Indication: DYSMENORRHOEA
     Route: 048
  8. ASPIRIN. [Concomitant]
     Active Substance: ASPIRIN
     Dosage: 81.0MG UNKNOWN
  9. MOVANTIK [Suspect]
     Active Substance: NALOXEGOL OXALATE
     Indication: CONSTIPATION
     Route: 048
     Dates: start: 201607, end: 201608
  10. MOVANTIK [Suspect]
     Active Substance: NALOXEGOL OXALATE
     Indication: POSTOPERATIVE CARE
     Route: 048
     Dates: start: 20180319
  11. MOVANTIK [Suspect]
     Active Substance: NALOXEGOL OXALATE
     Indication: CONSTIPATION
     Route: 048
     Dates: start: 20180319
  12. MOVANTIK [Suspect]
     Active Substance: NALOXEGOL OXALATE
     Indication: CONSTIPATION
     Route: 048

REACTIONS (5)
  - Off label use [Recovered/Resolved]
  - Product use in unapproved indication [Unknown]
  - Drug dependence [Unknown]
  - Intentional product misuse [Unknown]
  - Thyroid cancer [Unknown]

NARRATIVE: CASE EVENT DATE: 201607
